FAERS Safety Report 8919806 (Version 1)
Quarter: 2012Q4

REPORT INFORMATION
  Report Type: 
  Country: JP (occurrence: JP)
  Receive Date: 20121121
  Receipt Date: 20121121
  Transmission Date: 20130627
  Serious: Yes (Hospitalization, Other)
  Sender: FDA-Public Use
  Company Number: JP-009507513-2012SP013816

PATIENT
  Age: 64 Year
  Sex: Female
  Weight: 50 kg

DRUGS (11)
  1. PEGINTRON [Suspect]
     Indication: CHRONIC HEPATITIS C
     Dosage: 1.6 Microgram per kilogram, qw
     Route: 058
     Dates: start: 20120106, end: 20120112
  2. PEGINTRON [Suspect]
     Dosage: 1.0 Microgram per kilogram, qw
     Route: 058
     Dates: start: 20120113
  3. REBETOL [Suspect]
     Indication: CHRONIC HEPATITIS C
     Dosage: 600 mg, qd
     Route: 048
     Dates: start: 20120106, end: 20120126
  4. REBETOL [Suspect]
     Dosage: 400 mg, qd
     Route: 048
     Dates: start: 20120127, end: 20120202
  5. REBETOL [Suspect]
     Dosage: 200 mg, qd
     Route: 048
     Dates: start: 20120203
  6. TELAVIC [Suspect]
     Indication: CHRONIC HEPATITIS C
     Dosage: 2250 mg, qd
     Route: 048
     Dates: start: 20120106, end: 20120126
  7. TELAVIC [Suspect]
     Dosage: 1500 mg, qd
     Route: 048
     Dates: start: 20120127, end: 20120330
  8. LOXOPROFEN [Concomitant]
     Indication: PROPHYLAXIS
     Dosage: 60 mg per day, as needed
     Route: 048
     Dates: start: 20120106
  9. CERCINE [Concomitant]
     Dosage: UPDATE (09MAY2012):
     Route: 048
     Dates: start: 20120309
  10. PURSENNID (SENNA) [Concomitant]
     Dosage: UPDATE (09MAY2012):
     Route: 048
     Dates: start: 20120316, end: 20120322
  11. MAGMITT [Concomitant]
     Dosage: UPDATE (09MAY2012):
     Route: 048
     Dates: start: 20120323

REACTIONS (2)
  - Decreased appetite [Recovering/Resolving]
  - White blood cell count decreased [Recovering/Resolving]
